FAERS Safety Report 14385378 (Version 3)
Quarter: 2019Q4

REPORT INFORMATION
  Report Type: Spontaneous
  Country: US (occurrence: US)
  Receive Date: 20180115
  Receipt Date: 20191114
  Transmission Date: 20200122
  Serious: Yes (Other)
  Sender: FDA-Public Use
  Company Number: US-SA-2016SA229706

PATIENT
  Age: 66 Year
  Sex: Female
  Weight: 90 kg

DRUGS (10)
  1. TAXOTERE [Suspect]
     Active Substance: DOCETAXEL
     Dosage: 152 MG,Q3W
     Route: 042
     Dates: start: 20160706, end: 20160706
  2. NORCO [Concomitant]
     Active Substance: ACETAMINOPHEN\HYDROCODONE BITARTRATE
     Indication: PAIN
     Dosage: 1 DF,PRN
     Route: 048
     Dates: start: 20150401, end: 20170228
  3. XANAX [Concomitant]
     Active Substance: ALPRAZOLAM
     Dosage: UNK UNK,UNK
     Route: 065
     Dates: start: 20150401, end: 20161120
  4. BENADRYL [Concomitant]
     Active Substance: DIPHENHYDRAMINE HYDROCHLORIDE
     Dosage: UNK UNK,UNK
     Route: 065
     Dates: start: 20150104
  5. CARBOPLATIN. [Concomitant]
     Active Substance: CARBOPLATIN
     Indication: BREAST CANCER FEMALE
     Dosage: 458 MG,QCY
     Route: 042
     Dates: start: 20160308, end: 20160308
  6. CARBOPLATIN. [Concomitant]
     Active Substance: CARBOPLATIN
     Dosage: 458 MG,QCY
     Route: 042
     Dates: start: 20160706, end: 20160706
  7. ZANTAC [Concomitant]
     Active Substance: RANITIDINE HYDROCHLORIDE
     Dosage: 150 MG,QD
     Route: 048
     Dates: start: 20150401, end: 20161130
  8. TAXOTERE [Suspect]
     Active Substance: DOCETAXEL
     Indication: BREAST CANCER
     Dosage: 152 MG,Q3W
     Route: 042
     Dates: start: 20160308, end: 20160308
  9. METOPROLOL. [Concomitant]
     Active Substance: METOPROLOL
     Dosage: UNK UNK,UNK
     Route: 065
     Dates: start: 20070101
  10. ZOFRAN [Concomitant]
     Active Substance: ONDANSETRON HYDROCHLORIDE
     Dosage: 16 MG,QD
     Route: 042
     Dates: start: 20150401, end: 20161231

REACTIONS (4)
  - Emotional distress [Unknown]
  - Psychological trauma [Unknown]
  - Alopecia [Recovering/Resolving]
  - Anxiety [Unknown]

NARRATIVE: CASE EVENT DATE: 20161206
